FAERS Safety Report 8847004 (Version 1)
Quarter: 2012Q4

REPORT INFORMATION
  Report Type: 
  Country: US (occurrence: US)
  Receive Date: 20121018
  Receipt Date: 20121018
  Transmission Date: 20130627
  Serious: Yes (Death)
  Sender: FDA-Public Use
  Company Number: US-PFIZER INC-2012254879

PATIENT
  Age: 82 Year
  Sex: Female

DRUGS (1)
  1. REVATIO [Suspect]
     Dosage: 20 mg, 3x/day
     Dates: start: 20090216, end: 20121005

REACTIONS (1)
  - Death [Fatal]
